FAERS Safety Report 11617380 (Version 1)
Quarter: 2015Q4

REPORT INFORMATION
  Report Type: Spontaneous
  Country: US (occurrence: US)
  Receive Date: 20151009
  Receipt Date: 20151009
  Transmission Date: 20160304
  Serious: Yes (Other)
  Sender: FDA-Public Use
  Company Number: US-ELI_LILLY_AND_COMPANY-US201510000674

PATIENT
  Sex: Female

DRUGS (1)
  1. FORTEO [Suspect]
     Active Substance: TERIPARATIDE
     Indication: OSTEOPOROSIS
     Dosage: UNK, QD
     Route: 065
     Dates: start: 2012, end: 2013

REACTIONS (9)
  - Bone density decreased [Unknown]
  - Decreased activity [Unknown]
  - Neuropathy peripheral [Unknown]
  - Blood parathyroid hormone increased [Unknown]
  - Pelvic fracture [Unknown]
  - Cerebrovascular accident [Unknown]
  - Lower limb fracture [Unknown]
  - Fracture [Unknown]
  - Feeling abnormal [Unknown]
